FAERS Safety Report 4303213-2 (Version None)
Quarter: 2004Q1

REPORT INFORMATION
  Report Type: 
  Country: None (occurrence: None)
  Receive Date: 20040224
  Receipt Date: 20040213
  Transmission Date: 20041129
  Serious: Yes (Other)
  Sender: FDA-Public Use
  Company Number: JP-BRISTOL-MYERS SQUIBB COMPANY-12508065

PATIENT
  Age: 8 Decade
  Sex: Female

DRUGS (1)
  1. TAXOL [Suspect]
     Indication: BREAST CANCER RECURRENT
     Dosage: THERAPY DATES: 13-FEB-2003 TO 06-JAN-2004
     Route: 042
     Dates: start: 20040106, end: 20040106

REACTIONS (1)
  - CEREBRAL INFARCTION [None]
